FAERS Safety Report 7746986-9 (Version None)
Quarter: 2011Q3

REPORT INFORMATION
  Report Type: 
  Country: None (occurrence: None)
  Receive Date: 20110913
  Receipt Date: 20110906
  Transmission Date: 20111222
  Serious: Yes (Hospitalization, Other)
  Sender: FDA-Public Use
  Company Number: PHHY2010JP11071

PATIENT
  Sex: Female
  Weight: 40 kg

DRUGS (10)
  1. EXJADE [Suspect]
     Dosage: 750 MG, QOD
     Route: 048
     Dates: start: 20090602, end: 20090605
  2. LENDORMIN [Concomitant]
     Indication: LIVER DISORDER
     Dosage: 0.25 MG
     Route: 048
     Dates: start: 20090427, end: 20100216
  3. DESFERAL [Concomitant]
     Dosage: 500 MG
     Route: 030
     Dates: start: 20080630, end: 20080714
  4. PREDNISOLONE [Concomitant]
     Indication: LIVER DISORDER
     Dosage: 10 MG
     Route: 048
     Dates: start: 20090427, end: 20100216
  5. ONEALFA [Concomitant]
     Indication: LIVER DISORDER
     Dosage: 1 UG
     Route: 048
     Dates: start: 20090427, end: 20100216
  6. NIZATIDINE [Concomitant]
     Indication: LIVER DISORDER
     Dosage: 150 MG
     Route: 048
     Dates: start: 20090427, end: 20100216
  7. DEPAS [Concomitant]
     Indication: LIVER DISORDER
     Dosage: 0.5 MG
     Route: 048
     Dates: start: 20090427, end: 20100216
  8. ALDACTONE [Concomitant]
     Indication: LIVER DISORDER
     Dosage: 25 MG
     Route: 048
     Dates: start: 20090427, end: 20100216
  9. RED BLOOD CELLS, CONCENTRATED [Concomitant]
     Dosage: 2 U,  EVERY ONE OR TWO MONTHS
     Dates: start: 20090414, end: 20100216
  10. EXJADE [Suspect]
     Indication: IRON OVERLOAD
     Dosage: 750 MG,DAILY
     Route: 048
     Dates: start: 20090427, end: 20090601

REACTIONS (5)
  - HEPATIC FUNCTION ABNORMAL [None]
  - CONDITION AGGRAVATED [None]
  - RETINAL HAEMORRHAGE [None]
  - MALAISE [None]
  - DEAFNESS [None]
